FAERS Safety Report 4865758-6 (Version None)
Quarter: 2005Q4

REPORT INFORMATION
  Report Type: 
  Country: None (occurrence: None)
  Receive Date: 20051223
  Receipt Date: 20051118
  Transmission Date: 20060501
  Serious: Yes (Disabling, Other)
  Sender: FDA-Public Use
  Company Number: PHEH2005US12721

PATIENT
  Age: 8 Year
  Sex: Male

DRUGS (2)
  1. NEORAL [Suspect]
     Indication: LIVER TRANSPLANT
     Dosage: 1.25 MG, BID
     Route: 048
     Dates: start: 19990101
  2. ALBUTEROL [Concomitant]

REACTIONS (3)
  - BLOOD GROWTH HORMONE INCREASED [None]
  - INSULIN-LIKE GROWTH FACTOR INCREASED [None]
  - PITUITARY TUMOUR BENIGN [None]
